FAERS Safety Report 7149533-8 (Version None)
Quarter: 2010Q4

REPORT INFORMATION
  Report Type: 
  Country: None (occurrence: None)
  Receive Date: 20101209
  Receipt Date: 20101201
  Transmission Date: 20110411
  Serious: Yes (Hospitalization)
  Sender: FDA-Public Use
  Company Number: US-ABBOTT-10P-163-0679448-00

PATIENT
  Sex: Female
  Weight: 74.7 kg

DRUGS (4)
  1. HUMIRA [Suspect]
     Indication: PSORIASIS
     Route: 058
     Dates: start: 20080807
  2. CLOBEX [Concomitant]
     Indication: PSORIASIS
     Route: 061
  3. ELOCON [Concomitant]
     Indication: PSORIASIS
     Route: 061
  4. ONDANSETRON ODT [Concomitant]
     Indication: ABDOMINAL PAIN LOWER

REACTIONS (1)
  - PANCREATITIS [None]
